FAERS Safety Report 19853222 (Version 1)
Quarter: 2021Q3

REPORT INFORMATION
  Report Type: Spontaneous
  Country: US (occurrence: US)
  Receive Date: 20210919
  Receipt Date: 20210919
  Transmission Date: 20211014
  Serious: No
  Sender: FDA-Public Use
  Company Number: US-SA-2021SA304298

PATIENT
  Sex: Female
  Weight: 144 kg

DRUGS (1)
  1. DUPIXENT [Suspect]
     Active Substance: DUPILUMAB
     Indication: ASTHMA
     Dosage: 300MG/2ML, 300 MG, QOW
     Route: 058

REACTIONS (2)
  - Product use issue [Unknown]
  - Extra dose administered [Unknown]
